FAERS Safety Report 5460967-X (Version None)
Quarter: 2007Q3

REPORT INFORMATION
  Report Type: 
  Country: None (occurrence: None)
  Receive Date: 20070823
  Receipt Date: 20061120
  Transmission Date: 20080115
  Serious: Yes (Other)
  Sender: FDA-Public Use
  Company Number: US-2006-029180

PATIENT
  Age: 52 Year
  Sex: Female
  Weight: 105 kg

DRUGS (2)
  1. LEVLITE 28 (ETHINYLTRASDIOL, LEVONOGESTREL) COATED TABLET [Suspect]
     Indication: MENORRHAGIA
     Dosage: 1 TAB(S) 1X/DAY, ORAL
     Route: 048
     Dates: start: 20060220
  2. MERIDIA [Concomitant]

REACTIONS (2)
  - DEEP VEIN THROMBOSIS [None]
  - PULMONARY EMBOLISM [None]
